FAERS Safety Report 6584680-0 (Version None)
Quarter: 2010Q1

REPORT INFORMATION
  Report Type: 
  Country: None (occurrence: None)
  Receive Date: 20100217
  Receipt Date: 20100203
  Transmission Date: 20100710
  Serious: Yes (Hospitalization, Other)
  Sender: FDA-Public Use
  Company Number: PHHY2010JP07224

PATIENT
  Age: 10 Year
  Sex: Male

DRUGS (4)
  1. CYCLOSPORINE [Suspect]
     Indication: FOCAL SEGMENTAL GLOMERULOSCLEROSIS
  2. PREDNISOLONE [Suspect]
     Route: 048
  3. CYCLOPHOSPHAMIDE [Concomitant]
  4. METHYLPREDNISOLONE [Concomitant]
     Dosage: 30 MG/KG/DAY

REACTIONS (12)
  - CARDIAC MURMUR [None]
  - COUGH [None]
  - DISSEMINATED INTRAVASCULAR COAGULATION [None]
  - HYPERCOAGULATION [None]
  - HYPOALBUMINAEMIA [None]
  - INTRACARDIAC THROMBUS [None]
  - NEPHROTIC SYNDROME [None]
  - OEDEMA [None]
  - PNEUMONIA BACTERIAL [None]
  - PNEUMONIA FUNGAL [None]
  - PYREXIA [None]
  - THORACOTOMY [None]
